FAERS Safety Report 7991884-9 (Version None)
Quarter: 2011Q4

REPORT INFORMATION
  Report Type: 
  Country: None (occurrence: None)
  Receive Date: 20111219
  Receipt Date: 20111213
  Transmission Date: 20120403
  Serious: Yes (Hospitalization, Other)
  Sender: FDA-Public Use
  Company Number: US-ROCHE-760459

PATIENT
  Sex: Male
  Weight: 68.1 kg

DRUGS (1)
  1. ACCUTANE [Suspect]
     Indication: ACNE
     Route: 065
     Dates: start: 19860101, end: 19890101

REACTIONS (15)
  - LIVER DISORDER [None]
  - SUICIDAL IDEATION [None]
  - DEPRESSION [None]
  - FRACTURE [None]
  - VISION BLURRED [None]
  - COLITIS ULCERATIVE [None]
  - IRRITABLE BOWEL SYNDROME [None]
  - HEPATIC ENZYME INCREASED [None]
  - CROHN'S DISEASE [None]
  - INFLAMMATORY BOWEL DISEASE [None]
  - INTESTINAL HAEMORRHAGE [None]
  - HAEMORRHOIDS [None]
  - ARTHRITIS [None]
  - ARTHRALGIA [None]
  - GASTROINTESTINAL INJURY [None]
